FAERS Safety Report 6389813-7 (Version None)
Quarter: 2009Q4

REPORT INFORMATION
  Report Type: 
  Country: None (occurrence: None)
  Receive Date: 20091002
  Receipt Date: 20091002
  Transmission Date: 20100525
  Serious: No
  Sender: FDA-Public Use
  Company Number: None

PATIENT
  Sex: Male
  Weight: 89.1 kg

DRUGS (1)
  1. FLUTICASONE PROPIONATE [Suspect]
     Indication: MULTIPLE ALLERGIES
     Dosage: 2 SPRAYS IN EACH NOSTRILS DAILY INTRANASAL
     Dates: start: 20090429

REACTIONS (4)
  - EPISTAXIS [None]
  - MEDICAL DEVICE COMPLICATION [None]
  - PRODUCT SHAPE ISSUE [None]
  - PRODUCT SUBSTITUTION ISSUE [None]
